FAERS Safety Report 5367329-4 (Version None)
Quarter: 2007Q2

REPORT INFORMATION
  Report Type: 
  Country: None (occurrence: None)
  Receive Date: 20070622
  Receipt Date: 20060523
  Transmission Date: 20071010
  Serious: No
  Sender: FDA-Public Use
  Company Number: US-ASTRAZENECA-2006UW10055

PATIENT
  Age: 83 Year
  Sex: Female
  Weight: 51.3 kg

DRUGS (8)
  1. PULMICORT RESPULES [Suspect]
     Indication: CHRONIC OBSTRUCTIVE PULMONARY DISEASE
     Route: 055
  2. PULMICORT RESPULES [Suspect]
     Indication: EMPHYSEMA
     Route: 055
  3. EYE DROPS [Concomitant]
     Indication: GLAUCOMA
  4. ATIVAN [Concomitant]
  5. ALBUTEROL [Concomitant]
  6. DUONEB [Concomitant]
     Route: 055
  7. MIRTAZAPINE [Concomitant]
  8. PULMOCARE [Concomitant]
     Dosage: 4 CANS PER NIGHT

REACTIONS (4)
  - DYSGEUSIA [None]
  - NAUSEA [None]
  - STOMATITIS [None]
  - TONGUE COATED [None]
